FAERS Safety Report 20691596 (Version 1)
Quarter: 2022Q2

REPORT INFORMATION
  Report Type: Spontaneous
  Country: JP (occurrence: JP)
  Receive Date: 20220408
  Receipt Date: 20220408
  Transmission Date: 20220720
  Serious: Yes (Hospitalization)
  Sender: FDA-Public Use
  Company Number: JP-TAKEDA-2022TJP036865

PATIENT
  Age: 42 Year
  Sex: Female
  Weight: 72.3 kg

DRUGS (1)
  1. LEUPLIN [Suspect]
     Active Substance: LEUPROLIDE ACETATE
     Indication: Uterine leiomyoma
     Dosage: 1.88 MILLIGRAM, Q4WEEKS
     Route: 058
     Dates: start: 20200728

REACTIONS (9)
  - Abdominal pain lower [Recovered/Resolved]
  - Nausea [Recovered/Resolved]
  - Vomiting [Recovered/Resolved]
  - Nausea [Unknown]
  - Abdominal pain lower [Unknown]
  - Hypophosphataemia [Unknown]
  - Hypokalaemia [Unknown]
  - Respiratory alkalosis [Unknown]
  - Feeding disorder [Recovered/Resolved]

NARRATIVE: CASE EVENT DATE: 20200812
